FAERS Safety Report 12934949 (Version 1)
Quarter: 2016Q4

REPORT INFORMATION
  Report Type: Spontaneous
  Country: US (occurrence: US)
  Receive Date: 20161113
  Receipt Date: 20161113
  Transmission Date: 20170207
  Serious: No
  Sender: FDA-Public Use
  Company Number: US-009507513-1611USA000471

PATIENT
  Sex: Female

DRUGS (2)
  1. ZOLINZA [Suspect]
     Active Substance: VORINOSTAT
     Dosage: 400 MG AT NIGHT
     Route: 048
  2. XANAX [Concomitant]
     Active Substance: ALPRAZOLAM
     Dosage: ONE-HALF OF A TABLET, AT NIGHT
     Dates: start: 1986

REACTIONS (2)
  - Feeling drunk [Unknown]
  - Confusional state [Unknown]
